FAERS Safety Report 10167426 (Version 5)
Quarter: 2015Q1

REPORT INFORMATION
  Report Type: Report from Study
  Country: US (occurrence: US)
  Receive Date: 20140512
  Receipt Date: 20150202
  Transmission Date: 20150720
  Serious: Yes (Hospitalization)
  Sender: FDA-Public Use
  Company Number: US-SA-2014SA055477

PATIENT
  Age: 67 Year
  Sex: Male

DRUGS (2)
  1. AUBAGIO [Suspect]
     Active Substance: TERIFLUNOMIDE
     Indication: MULTIPLE SCLEROSIS
     Route: 048
     Dates: start: 20140418
  2. ACTHAR [Concomitant]
     Active Substance: CORTICOTROPIN
     Dates: start: 2009

REACTIONS (10)
  - Asthenia [Unknown]
  - Drug dose omission [Unknown]
  - Hip arthroplasty [Unknown]
  - Pain [Unknown]
  - Tremor [Unknown]
  - Vision blurred [Unknown]
  - Pyrexia [Unknown]
  - Hyperaesthesia [Unknown]
  - Pain [Recovering/Resolving]
  - Multiple sclerosis relapse [Unknown]

NARRATIVE: CASE EVENT DATE: 20140505
